FAERS Safety Report 4327233-7 (Version None)
Quarter: 2004Q1

REPORT INFORMATION
  Report Type: 
  Country: None (occurrence: None)
  Receive Date: 20040330
  Receipt Date: 20040322
  Transmission Date: 20041129
  Serious: Yes (Hospitalization)
  Sender: FDA-Public Use
  Company Number: US-BRISTOL-MYERS SQUIBB COMPANY-12540662

PATIENT
  Age: 43 Year
  Sex: Female

DRUGS (1)
  1. SERZONE [Suspect]
     Indication: DEPRESSION
     Dates: start: 19950101, end: 19950101

REACTIONS (12)
  - ANTIBODY TEST POSITIVE [None]
  - BRADYCARDIA [None]
  - CHILLS [None]
  - COUGH [None]
  - DEHYDRATION [None]
  - DIARRHOEA [None]
  - HEPATITIS INFECTIOUS MONONUCLEOSIS [None]
  - NAUSEA [None]
  - NIGHT SWEATS [None]
  - ORTHOSTATIC HYPOTENSION [None]
  - PLEURITIC PAIN [None]
  - PYREXIA [None]
